FAERS Safety Report 21563961 (Version 2)
Quarter: 2022Q4

REPORT INFORMATION
  Report Type: Other
  Country: US (occurrence: None)
  Receive Date: 20221108
  Receipt Date: 20221116
  Transmission Date: 20230112
  Serious: Yes (Other)
  Sender: FDA-Public Use
  Company Number: US-ROCHE-3047756

PATIENT
  Age: 80 Year
  Sex: Female
  Weight: 59.928 kg

DRUGS (22)
  1. ACTEMRA [Suspect]
     Active Substance: TOCILIZUMAB
     Indication: Giant cell arteritis
     Dosage: NO
     Route: 058
     Dates: start: 2021, end: 20220225
  2. ACTEMRA [Suspect]
     Active Substance: TOCILIZUMAB
  3. ACTEMRA [Suspect]
     Active Substance: TOCILIZUMAB
  4. ACTEMRA [Suspect]
     Active Substance: TOCILIZUMAB
     Indication: Polymyalgia rheumatica
     Dosage: NO
     Route: 058
     Dates: end: 2021
  5. ACTEMRA [Suspect]
     Active Substance: TOCILIZUMAB
  6. ACTEMRA [Suspect]
     Active Substance: TOCILIZUMAB
  7. ACTEMRA [Suspect]
     Active Substance: TOCILIZUMAB
     Route: 058
  8. ACTEMRA [Suspect]
     Active Substance: TOCILIZUMAB
  9. ACTEMRA [Suspect]
     Active Substance: TOCILIZUMAB
  10. ACTEMRA [Suspect]
     Active Substance: TOCILIZUMAB
     Dosage: EVERY WEEK
     Route: 058
  11. ACTEMRA [Suspect]
     Active Substance: TOCILIZUMAB
  12. ACTEMRA [Suspect]
     Active Substance: TOCILIZUMAB
  13. MEMANTINE [Concomitant]
     Active Substance: MEMANTINE
     Indication: Amnesia
     Dosage: 5MG TABLET; ONGOING YES
     Route: 048
  14. LOVASTATIN [Concomitant]
     Active Substance: LOVASTATIN
     Indication: Blood cholesterol
     Dosage: ONGOING:YES
     Route: 048
  15. ASPIRIN [Concomitant]
     Active Substance: ASPIRIN
     Indication: Myocardial infarction
     Dosage: TAKES AT NIGHT ;ONGOING: YES
     Route: 048
  16. ARFORMOTEROL [Concomitant]
     Active Substance: ARFORMOTEROL
     Indication: Hypersensitivity
     Dosage: 50 MCG/2 ML ;ONGOING: YES
     Route: 045
  17. ARFORMOTEROL [Concomitant]
     Active Substance: ARFORMOTEROL
     Indication: Lower respiratory tract congestion
  18. PULMICORT TURBUHALER [Concomitant]
     Active Substance: BUDESONIDE
     Indication: Hypersensitivity
     Dosage: 0.5 MG/2 ML ;ONGOING: YES
     Route: 045
  19. ASTELIN [Concomitant]
     Active Substance: AZELASTINE HYDROCHLORIDE
     Indication: Hypersensitivity
     Dosage: 137 MCG/0.1% 1 SPRAY EACH NOSTRIL TWICE DAILY ;ONGOING: YES
     Route: 045
  20. CYMBALTA [Concomitant]
     Active Substance: DULOXETINE HYDROCHLORIDE
     Indication: Depression
     Route: 048
  21. FLONASE [Concomitant]
     Active Substance: FLUTICASONE PROPIONATE
     Indication: Hypersensitivity
     Dosage: 2 SPRAYS EACH NOSTRIL AT NIGHT ;ONGOING: YES
     Route: 045
  22. LAMICTAL [Concomitant]
     Active Substance: LAMOTRIGINE
     Indication: Depression
     Route: 048

REACTIONS (4)
  - Parkinson^s disease [Unknown]
  - Off label use [Unknown]
  - Fall [Unknown]
  - Nightmare [Recovered/Resolved]

NARRATIVE: CASE EVENT DATE: 20210701
